FAERS Safety Report 6736713-6 (Version None)
Quarter: 2010Q2

REPORT INFORMATION
  Report Type: 
  Country: None (occurrence: None)
  Receive Date: 20100521
  Receipt Date: 20100517
  Transmission Date: 20101027
  Serious: Yes (Life-Threatening, Hospitalization)
  Sender: FDA-Public Use
  Company Number: PHHY2009FR19430

PATIENT
  Sex: Female

DRUGS (3)
  1. GLEEVEC [Suspect]
     Indication: CHRONIC MYELOID LEUKAEMIA
     Dosage: UNK
     Route: 048
     Dates: start: 20060601
  2. GLEEVEC [Suspect]
     Dosage: 40 TAB OF 400 MG/ 16 G
     Route: 048
     Dates: start: 20090520
  3. LEVOTHYROXINE SODIUM [Concomitant]
     Dosage: 125 UG, UNK

REACTIONS (6)
  - ABDOMINAL PAIN [None]
  - INTENTIONAL OVERDOSE [None]
  - NAUSEA [None]
  - SUICIDE ATTEMPT [None]
  - TROPONIN INCREASED [None]
  - VOMITING [None]
